FAERS Safety Report 7505378-8 (Version None)
Quarter: 2011Q2

REPORT INFORMATION
  Report Type: 
  Country: None (occurrence: None)
  Receive Date: 20110526
  Receipt Date: 20110514
  Transmission Date: 20111010
  Serious: Yes (Other)
  Sender: FDA-Public Use
  Company Number: AU-JNJFOC-20101209154

PATIENT
  Sex: Female

DRUGS (13)
  1. ASPIRIN [Concomitant]
  2. CANDESARTAN CILEXETIL [Concomitant]
  3. INDAPAMIDE [Concomitant]
  4. ROSUVASTATIN [Concomitant]
  5. ESOMEPRAZOLE MAGNESIUM [Concomitant]
  6. ESTROGENIC SUBSTANCE [Concomitant]
  7. CLOPIDOGREL [Concomitant]
  8. RAMIPRIL [Concomitant]
  9. MEDROXYPROGESTERONE [Concomitant]
  10. STELARA [Suspect]
     Route: 058
     Dates: start: 20110203
  11. STELARA [Suspect]
     Indication: PRODUCT USED FOR UNKNOWN INDICATION
     Route: 058
     Dates: start: 20101110
  12. ATENOLOL [Concomitant]
  13. NITROGLYCERIN [Concomitant]

REACTIONS (3)
  - ARTHRITIS [None]
  - PERIPHERAL VASCULAR DISORDER [None]
  - CELLULITIS [None]
